FAERS Safety Report 9815017 (Version 2)
Quarter: 2014Q1

REPORT INFORMATION
  Report Type: Report from Study
  Country: US (occurrence: US)
  Receive Date: 20140114
  Receipt Date: 20140204
  Transmission Date: 20141002
  Serious: Yes (Hospitalization)
  Sender: FDA-Public Use
  Company Number: US-ROCHE-1329387

PATIENT
  Age: 49 Year
  Sex: Female
  Weight: 48.1 kg

DRUGS (7)
  1. BEVACIZUMAB [Suspect]
     Indication: GLIOBLASTOMA MULTIFORME
     Route: 065
     Dates: start: 20131121, end: 20131205
  2. VORINOSTAT [Suspect]
     Indication: GLIOBLASTOMA
     Route: 065
     Dates: start: 20131121, end: 20131127
  3. VORINOSTAT [Suspect]
     Route: 065
     Dates: start: 20131205, end: 20131211
  4. MELATONIN [Concomitant]
     Dosage: NIGHTLY
     Route: 065
  5. LEVETIRACETAM [Concomitant]
     Route: 065
  6. VITAMIN D3 [Concomitant]
     Route: 065
  7. JUICE PLUS+ [Concomitant]
     Route: 065

REACTIONS (5)
  - Asthenia [Unknown]
  - Abasia [Unknown]
  - Heart rate decreased [Unknown]
  - Partial seizures [Unknown]
  - Bradycardia [Unknown]
